FAERS Safety Report 9768447 (Version 1)
Quarter: 2013Q4

REPORT INFORMATION
  Report Type: Spontaneous
  Country: IT (occurrence: IT)
  Receive Date: 20131217
  Receipt Date: 20131217
  Transmission Date: 20140711
  Serious: Yes (Hospitalization)
  Sender: FDA-Public Use
  Company Number: IT-WATSON-2013-23471

PATIENT
  Age: 74 Year
  Sex: Male

DRUGS (2)
  1. CARBOPLATIN (UNKNOWN) [Suspect]
     Indication: LUNG NEOPLASM MALIGNANT
     Dosage: 1 DF, PER CYCLE
     Route: 042
     Dates: start: 20130819, end: 20130903
  2. ALTIMA [Suspect]
     Indication: LUNG NEOPLASM MALIGNANT
     Dosage: 1 DF, PER CYCLE
     Route: 042
     Dates: start: 20130819, end: 20130903

REACTIONS (2)
  - Pancytopenia [Recovering/Resolving]
  - Neutropenia [Recovering/Resolving]
